FAERS Safety Report 8321286-7 (Version None)
Quarter: 2012Q2

REPORT INFORMATION
  Report Type: 
  Country: None (occurrence: None)
  Receive Date: 20120430
  Receipt Date: 20120424
  Transmission Date: 20120825
  Serious: Yes (Hospitalization)
  Sender: FDA-Public Use
  Company Number: US-BAYER-201039750NA

PATIENT
  Age: 33 Year
  Sex: Female
  Weight: 88 kg

DRUGS (6)
  1. MOTRIN [Concomitant]
  2. NAPROXEN (ALEVE) [Concomitant]
  3. YAZ [Suspect]
     Indication: CONTRACEPTION
     Dosage: UNK UNK, QD
     Route: 048
     Dates: start: 20080201, end: 20091101
  4. YAZ [Suspect]
     Indication: DYSMENORRHOEA
  5. HYDROCHLOROTHIAZIDE [Concomitant]
     Indication: HYPERTENSION
     Dosage: 25 MG, QD
     Dates: start: 20080101
  6. LABETALOL HCL [Concomitant]

REACTIONS (2)
  - DEEP VEIN THROMBOSIS [None]
  - PULMONARY EMBOLISM [None]
